FAERS Safety Report 9742570 (Version 2)
Quarter: 2015Q3

REPORT INFORMATION
  Report Type: Spontaneous
  Country: US (occurrence: US)
  Receive Date: 20131210
  Receipt Date: 20150804
  Transmission Date: 20151125
  Serious: No
  Sender: FDA-Public Use
  Company Number: US-GILEAD-2009-0024279

PATIENT
  Age: 61 Year
  Sex: Male
  Weight: 89.36 kg

DRUGS (11)
  1. POTASSIUM CHLORIDE. [Concomitant]
     Active Substance: POTASSIUM CHLORIDE
  2. FUROSEMIDE. [Concomitant]
     Active Substance: FUROSEMIDE
  3. OS-CAL 250+D [Concomitant]
  4. DIGOXIN. [Concomitant]
     Active Substance: DIGOXIN
  5. WARFARIN [Concomitant]
     Active Substance: WARFARIN
  6. ALLOPURINOL. [Concomitant]
     Active Substance: ALLOPURINOL
  7. DILTIAZEM [Concomitant]
     Active Substance: DILTIAZEM
  8. LETAIRIS [Suspect]
     Active Substance: AMBRISENTAN
     Indication: PULMONARY ARTERIAL HYPERTENSION
     Route: 048
     Dates: start: 20090831
  9. THEOPHYLLINE [Concomitant]
     Active Substance: THEOPHYLLINE ANHYDROUS
  10. OXYGEN. [Concomitant]
     Active Substance: OXYGEN
  11. PANTOPRAZOLE [Concomitant]
     Active Substance: PANTOPRAZOLE SODIUM

REACTIONS (1)
  - Peripheral swelling [Unknown]
